FAERS Safety Report 20309063 (Version 1)
Quarter: 2022Q1

REPORT INFORMATION
  Report Type: Spontaneous
  Country: IT (occurrence: IT)
  Receive Date: 20220107
  Receipt Date: 20220107
  Transmission Date: 20220424
  Serious: Yes (Hospitalization, Other)
  Sender: FDA-Public Use
  Company Number: IT-ABBVIE-22K-083-4222654-00

PATIENT
  Age: 43 Year
  Sex: Male

DRUGS (5)
  1. VALPROATE SODIUM [Suspect]
     Active Substance: VALPROATE SODIUM
     Indication: Intentional self-injury
     Route: 048
     Dates: start: 20181022, end: 20181022
  2. LORAZEPAM [Suspect]
     Active Substance: LORAZEPAM
     Indication: Intentional self-injury
     Route: 048
     Dates: start: 20181022, end: 20181022
  3. TRIAZOLAM [Suspect]
     Active Substance: TRIAZOLAM
     Indication: Intentional self-injury
     Route: 048
     Dates: start: 20181022, end: 20181022
  4. LEVOMEPROMAZINE MALEATE [Suspect]
     Active Substance: LEVOMEPROMAZINE MALEATE
     Indication: Intentional self-injury
     Route: 048
     Dates: start: 20181022, end: 20181022
  5. TRAZODONE HYDROCHLORIDE [Suspect]
     Active Substance: TRAZODONE HYDROCHLORIDE
     Indication: Intentional self-injury
     Route: 048
     Dates: start: 20181022, end: 20181022

REACTIONS (3)
  - Intentional self-injury [Recovered/Resolved]
  - Sopor [Recovered/Resolved]
  - Drug abuse [Unknown]

NARRATIVE: CASE EVENT DATE: 20181022
